FAERS Safety Report 5444626-5 (Version None)
Quarter: 2007Q3

REPORT INFORMATION
  Report Type: 
  Country: None (occurrence: None)
  Receive Date: 20070906
  Receipt Date: 20070904
  Transmission Date: 20080115
  Serious: Yes (Death)
  Sender: FDA-Public Use
  Company Number: US-MERCK-0708USA05268

PATIENT
  Age: 15 Year
  Sex: Male

DRUGS (1)
  1. SINGULAIR [Suspect]
     Indication: RHINITIS ALLERGIC
     Route: 048
     Dates: start: 20070701, end: 20070804

REACTIONS (8)
  - AGITATION [None]
  - ANGER [None]
  - ASTHENIA [None]
  - COMPLETED SUICIDE [None]
  - INSOMNIA [None]
  - IRRITABILITY [None]
  - PAIN IN EXTREMITY [None]
  - SENSATION OF HEAVINESS [None]
